FAERS Safety Report 7716701-3 (Version None)
Quarter: 2011Q3

REPORT INFORMATION
  Report Type: 
  Country: None (occurrence: None)
  Receive Date: 20110829
  Receipt Date: 20110818
  Transmission Date: 20111222
  Serious: Yes (Hospitalization, Other)
  Sender: FDA-Public Use
  Company Number: GB-ASTRAZENECA-2011SE47761

PATIENT
  Age: 32214 Day
  Sex: Female

DRUGS (8)
  1. MEROPENEM [Suspect]
     Dosage: 2 G EVERY 8 HOURS
     Route: 042
     Dates: start: 20110525, end: 20110530
  2. PIPERACILLIN AND TAZOBACTAM [Suspect]
     Dosage: 4.5 G EVERY 8 HOURS
     Route: 042
     Dates: start: 20110524, end: 20110525
  3. ASPIRIN [Concomitant]
  4. AMOXICILLIN AND CLAVULANATE POTASSIUM [Suspect]
     Indication: GASTROINTESTINAL TUBE INSERTION
     Route: 042
     Dates: start: 20110609, end: 20110609
  5. PIPERACILLIN AND TAZOBACTAM [Suspect]
     Dosage: 4.5 G EVERY 8 HOURS
     Route: 042
     Dates: start: 20110425, end: 20110428
  6. MEROPENEM [Suspect]
     Indication: LOWER RESPIRATORY TRACT INFECTION
     Dosage: 2 G EVERY 8 HOURS
     Route: 042
     Dates: start: 20110428, end: 20110505
  7. MEROPENEM [Suspect]
     Dosage: 2 G EVERY 8 HOURS
     Route: 042
     Dates: start: 20110514, end: 20110520
  8. PIPERACILLIN AND TAZOBACTAM [Suspect]
     Indication: LOWER RESPIRATORY TRACT INFECTION
     Dosage: 4.5 G EVERY 8 HOURS
     Route: 042
     Dates: start: 20110406, end: 20110411

REACTIONS (1)
  - CLOSTRIDIAL INFECTION [None]
